FAERS Safety Report 13051906 (Version 1)
Quarter: 2016Q4

REPORT INFORMATION
  Report Type: Spontaneous
  Country: NL (occurrence: NL)
  Receive Date: 20161221
  Receipt Date: 20161221
  Transmission Date: 20170207
  Serious: Yes (Other)
  Sender: FDA-Public Use
  Company Number: NL-TEVA-720597ROM

PATIENT
  Sex: Male

DRUGS (3)
  1. MAGISTRAAL NR PLACEBO [Concomitant]
     Dosage: HAD AN INFUSION 2 TIMES
     Dates: start: 20151020
  2. PREDNISON 20 MG [Suspect]
     Active Substance: PREDNISONE
     Dosage: 20 MILLIGRAM DAILY;
     Dates: start: 20151020
  3. INFLIXIMAB INFUUS [Concomitant]
     Dosage: HAD AN INFUSION 2 TIMES
     Dates: start: 20151020

REACTIONS (3)
  - Glaucoma [Unknown]
  - Intraocular pressure increased [Unknown]
  - Blindness unilateral [Unknown]

NARRATIVE: CASE EVENT DATE: 2015
